FAERS Safety Report 18099781 (Version 1)
Quarter: 2020Q3

REPORT INFORMATION
  Report Type: Spontaneous
  Country: FR (occurrence: FR)
  Receive Date: 20200731
  Receipt Date: 20200731
  Transmission Date: 20201103
  Serious: Yes (Life-Threatening, Hospitalization)
  Sender: FDA-Public Use
  Company Number: FR-CADILA HEALTHCARE LIMITED-FR-ZYDUS-024266

PATIENT

DRUGS (8)
  1. IBUPROFENE [Suspect]
     Active Substance: IBUPROFEN
     Indication: SUICIDE ATTEMPT
     Dosage: 800 MILLIGRAM
     Route: 048
     Dates: start: 20180404, end: 20180404
  2. TRAMADOL. [Suspect]
     Active Substance: TRAMADOL
     Indication: SUICIDE ATTEMPT
     Dosage: 400 MILLIGRAM
     Route: 048
     Dates: start: 20180404, end: 20180404
  3. VALSARTAN. [Suspect]
     Active Substance: VALSARTAN
     Indication: SUICIDE ATTEMPT
     Dosage: 1120 MILLIGRAM
     Route: 048
     Dates: start: 20180404, end: 20180404
  4. HYDROCHLOROTHIAZIDE. [Suspect]
     Active Substance: HYDROCHLOROTHIAZIDE
     Indication: SUICIDE ATTEMPT
     Dosage: 87.5 MILLIGRAM
     Dates: start: 20180404, end: 20180404
  5. ESOMEPRAZOLE. [Suspect]
     Active Substance: ESOMEPRAZOLE MAGNESIUM
     Indication: SUICIDE ATTEMPT
     Dosage: 160 MILLIGRAM
     Route: 048
     Dates: start: 20180404, end: 20180404
  6. LOXAPINE SUCCINATE. [Suspect]
     Active Substance: LOXAPINE SUCCINATE
     Indication: SUICIDE ATTEMPT
     Dosage: 100 MILLIGRAM
     Route: 048
     Dates: start: 20180404, end: 20180404
  7. BROMAZEPAM [Suspect]
     Active Substance: BROMAZEPAM
     Indication: SUICIDE ATTEMPT
     Dosage: 162 MILLIGRAM,162MG
     Route: 048
     Dates: start: 20180404, end: 20180404
  8. ZOLPIDEM [Suspect]
     Active Substance: ZOLPIDEM TARTRATE
     Indication: SUICIDE ATTEMPT
     Dosage: 45 MILLIGRAM
     Route: 048
     Dates: start: 20180404, end: 20180404

REACTIONS (4)
  - Tachycardia [Recovered/Resolved]
  - Coma [Recovered/Resolved]
  - Electrocardiogram QRS complex prolonged [Recovered/Resolved]
  - Hypotension [Recovered/Resolved]

NARRATIVE: CASE EVENT DATE: 20180404
